FAERS Safety Report 24737327 (Version 1)
Quarter: 2024Q4

REPORT INFORMATION
  Report Type: Spontaneous
  Country: US (occurrence: US)
  Receive Date: 20241216
  Receipt Date: 20241216
  Transmission Date: 20250114
  Serious: Yes (Other)
  Sender: PFIZER
  Company Number: US-PFIZER INC-PV202400161606

PATIENT
  Age: 60 Year
  Sex: Female

DRUGS (5)
  1. BEVACIZUMAB [Suspect]
     Active Substance: BEVACIZUMAB
     Indication: Small intestine carcinoma metastatic
     Dosage: EVERY 2 WEEKS
  2. FLUOROURACIL [Concomitant]
     Active Substance: FLUOROURACIL
     Indication: Small intestine carcinoma metastatic
     Dosage: EVERY 2 WEEKS
  3. LEVOTHYROXINE [Concomitant]
     Active Substance: LEVOTHYROXINE
     Indication: Primary hypothyroidism
     Dosage: 112 UG, DAILY
  4. LEVOTHYROXINE [Concomitant]
     Active Substance: LEVOTHYROXINE
     Dosage: 137 UG, DAILY
  5. LEVOTHYROXINE [Concomitant]
     Active Substance: LEVOTHYROXINE
     Dosage: 150 UG, DAILY

REACTIONS (1)
  - Hypothyroidism [Recovered/Resolved]
